FAERS Safety Report 5937182-6 (Version None)
Quarter: 2008Q4

REPORT INFORMATION
  Report Type: 
  Country: None (occurrence: None)
  Receive Date: 20081031
  Receipt Date: 20070206
  Transmission Date: 20090506
  Serious: Yes (Hospitalization)
  Sender: FDA-Public Use
  Company Number: PHBS2007ES02231

PATIENT
  Age: 55 Year
  Sex: Male

DRUGS (6)
  1. TRILEPTAL [Suspect]
     Indication: EPILEPSY
     Dosage: 1.8 G/DAY
     Route: 048
     Dates: start: 20061016, end: 20061031
  2. HYDROCHLOROTHIAZIDE [Interacting]
     Indication: ESSENTIAL HYPERTENSION
     Dosage: 25 MG/DAY
     Route: 048
     Dates: start: 20061025, end: 20061101
  3. ENALAPRIL MALEATE [Interacting]
     Indication: ESSENTIAL HYPERTENSION
     Dosage: 10 MG/DAY
     Route: 048
     Dates: start: 20061017
  4. PRISDAL [Interacting]
     Indication: DEPRESSION
     Dosage: 10 MG/DAY
     Route: 048
     Dates: start: 20061024, end: 20061110
  5. ZONEGRAN [Concomitant]
  6. PREGABALIN [Concomitant]

REACTIONS (2)
  - DRUG INTERACTION [None]
  - HYPONATRAEMIA [None]
